FAERS Safety Report 7112113-4 (Version None)
Quarter: 2010Q4

REPORT INFORMATION
  Report Type: 
  Country: None (occurrence: None)
  Receive Date: 20101119
  Receipt Date: 20091112
  Transmission Date: 20110411
  Serious: No
  Sender: FDA-Public Use
  Company Number: A0816782A

PATIENT
  Age: 67 Year
  Sex: Male

DRUGS (5)
  1. AVODART [Suspect]
     Indication: BENIGN PROSTATIC HYPERPLASIA
     Dosage: .5MG PER DAY
     Route: 048
     Dates: start: 20091111, end: 20091111
  2. FLOMAX [Concomitant]
  3. REQUIP [Concomitant]
  4. METFORMIN HCL [Concomitant]
  5. LIPITOR [Concomitant]

REACTIONS (2)
  - DRUG INTERACTION [None]
  - TREMOR [None]
